FAERS Safety Report 16528679 (Version 2)
Quarter: 2019Q3

REPORT INFORMATION
  Report Type: Report from Study
  Country: US (occurrence: US)
  Receive Date: 20190703
  Receipt Date: 20190805
  Transmission Date: 20191004
  Serious: Yes (Hospitalization)
  Sender: FDA-Public Use
  Company Number: US-ACTELION-A-NJ2019-187357

PATIENT
  Age: 10 Month
  Sex: Male

DRUGS (10)
  1. SILDENAFIL. [Concomitant]
     Active Substance: SILDENAFIL
  2. LEVETIRACETAM. [Concomitant]
     Active Substance: LEVETIRACETAM
  3. CUVPOSA [Concomitant]
     Active Substance: GLYCOPYRROLATE
  4. SILAPAP [Concomitant]
     Active Substance: ACETAMINOPHEN
  5. BOSENTAN TABLET 32 MG PED US [Suspect]
     Active Substance: BOSENTAN
     Indication: PULMONARY ARTERIAL HYPERTENSION
     Dosage: 8 MG, BID
     Route: 048
     Dates: start: 20190223
  6. FUROSEMIDE. [Concomitant]
     Active Substance: FUROSEMIDE
  7. OMEPRAZOLE. [Concomitant]
     Active Substance: OMEPRAZOLE
  8. ALBUTEROL. [Concomitant]
     Active Substance: ALBUTEROL
  9. SILACE [Concomitant]
     Active Substance: DOCUSATE SODIUM
  10. NYSTOP [Concomitant]
     Active Substance: NYSTATIN

REACTIONS (4)
  - Respiratory tract infection [Recovered/Resolved]
  - Unevaluable event [Recovered/Resolved]
  - Complication associated with device [Recovered/Resolved]
  - Off label use [Unknown]

NARRATIVE: CASE EVENT DATE: 20190719
